FAERS Safety Report 17451813 (Version 1)
Quarter: 2020Q1

REPORT INFORMATION
  Report Type: Spontaneous
  Country: US (occurrence: US)
  Receive Date: 20200224
  Receipt Date: 20200224
  Transmission Date: 20200409
  Serious: Yes (Death)
  Sender: FDA-Public Use
  Company Number: None

PATIENT
  Sex: Male

DRUGS (6)
  1. VITAMIN D [Concomitant]
     Active Substance: VITAMIN D NOS
  2. AMLODIPINE [Concomitant]
     Active Substance: AMLODIPINE BESYLATE
  3. LUPRON [Suspect]
     Active Substance: LEUPROLIDE ACETATE
     Indication: PROSTATE CANCER
     Dosage: ?          OTHER FREQUENCY:EVERY 3 MONTHS;OTHER ROUTE:INJECTION?
     Dates: start: 20180412
  4. METOPROLOL TARTRATE. [Concomitant]
     Active Substance: METOPROLOL TARTRATE
  5. PLAVIX [Concomitant]
     Active Substance: CLOPIDOGREL BISULFATE
  6. TAMSULOSIN [Concomitant]
     Active Substance: TAMSULOSIN

REACTIONS (1)
  - Death [None]
